FAERS Safety Report 22530796 (Version 6)
Quarter: 2024Q1

REPORT INFORMATION
  Report Type: Spontaneous
  Country: US (occurrence: US)
  Receive Date: 20230607
  Receipt Date: 20240102
  Transmission Date: 20240410
  Serious: Yes (Hospitalization, Other)
  Sender: FDA-Public Use
  Company Number: US-PFIZER INC-202300211687

PATIENT
  Age: 82 Year
  Sex: Male
  Weight: 79.365 kg

DRUGS (1)
  1. VYNDAMAX [Suspect]
     Active Substance: TAFAMIDIS
     Dosage: 61 MG

REACTIONS (8)
  - Pericardial effusion [Unknown]
  - Heart rate decreased [Unknown]
  - Fluid retention [Unknown]
  - Dyspnoea [Unknown]
  - Dyspnoea exertional [Unknown]
  - Product dose omission issue [Unknown]
  - Mental disorder [Unknown]
  - Memory impairment [Unknown]
